FAERS Safety Report 11929464 (Version 3)
Quarter: 2016Q2

REPORT INFORMATION
  Report Type: Report from Study
  Country: CO (occurrence: CO)
  Receive Date: 20160120
  Receipt Date: 20160401
  Transmission Date: 20160815
  Serious: Yes (Hospitalization)
  Sender: FDA-Public Use
  Company Number: PHHY2016CO005398

PATIENT
  Sex: Female
  Weight: 52 kg

DRUGS (3)
  1. VOTRIENT [Suspect]
     Active Substance: PAZOPANIB HYDROCHLORIDE
     Indication: RENAL CANCER
     Dosage: 400 MG, QD
     Route: 048
     Dates: start: 20151106, end: 20160106
  2. VOTRIENT [Suspect]
     Active Substance: PAZOPANIB HYDROCHLORIDE
     Indication: SOFT TISSUE SARCOMA
  3. VOTRIENT [Suspect]
     Active Substance: PAZOPANIB HYDROCHLORIDE
     Indication: LEIOMYOSARCOMA

REACTIONS (7)
  - Poisoning [Unknown]
  - Dehydration [Unknown]
  - Vomiting [Unknown]
  - Hepatitis [Unknown]
  - Rebound effect [Unknown]
  - Diarrhoea [Unknown]
  - Yellow skin [Unknown]
